FAERS Safety Report 7880706-2 (Version None)
Quarter: 2011Q4

REPORT INFORMATION
  Report Type: 
  Country: None (occurrence: None)
  Receive Date: 20111101
  Receipt Date: 20111011
  Transmission Date: 20120403
  Serious: Yes (Hospitalization)
  Sender: FDA-Public Use
  Company Number: CA-JNJFOC-20111012705

PATIENT
  Sex: Male
  Weight: 76 kg

DRUGS (2)
  1. REMICADE [Suspect]
     Indication: CROHN'S DISEASE
     Dosage: 35 INFUSIONS
     Route: 042
  2. REMICADE [Suspect]
     Indication: SPINAL OSTEOARTHRITIS
     Dosage: 35 INFUSIONS
     Route: 042

REACTIONS (1)
  - PALPITATIONS [None]
